FAERS Safety Report 12115087 (Version 1)
Quarter: 2016Q1

REPORT INFORMATION
  Report Type: Spontaneous
  Country: US (occurrence: None)
  Receive Date: 20160224
  Receipt Date: 20160224
  Transmission Date: 20160526
  Serious: Yes (Life-Threatening, Disabling)
  Sender: FDA-Public Use
  Company Number: None

PATIENT
  Age: 71 Year
  Sex: Male
  Weight: 102.51 kg

DRUGS (7)
  1. LEVEMIR [Suspect]
     Active Substance: INSULIN DETEMIR
     Indication: DIABETES MELLITUS
     Dosage: 15 UNITS ^INJECT^ DAILY 24 HOUR (LONG LASTING INSULIN) INJECTION?
     Dates: start: 20150626, end: 20151008
  2. ASPIRIN. [Concomitant]
     Active Substance: ASPIRIN
  3. GABAPENTIN 100MG [Suspect]
     Active Substance: GABAPENTIN
  4. VIT B-12 [Concomitant]
  5. WARFARIN [Concomitant]
     Active Substance: WARFARIN
  6. OMEGA 3 [Concomitant]
     Active Substance: OMEGA-3 FATTY ACIDS
  7. METOPROLOL. [Concomitant]
     Active Substance: METOPROLOL

REACTIONS (5)
  - Hypoaesthesia [None]
  - Insomnia [None]
  - Neuropathy peripheral [None]
  - Treatment noncompliance [None]
  - Thinking abnormal [None]

NARRATIVE: CASE EVENT DATE: 20150707
